FAERS Safety Report 5831095-6 (Version None)
Quarter: 2008Q3

REPORT INFORMATION
  Report Type: 
  Country: None (occurrence: None)
  Receive Date: 20080801
  Receipt Date: 20080402
  Transmission Date: 20090109
  Serious: No
  Sender: FDA-Public Use
  Company Number: US-BRISTOL-MYERS SQUIBB COMPANY-14134993

PATIENT
  Age: 58 Year
  Sex: Female
  Weight: 38 kg

DRUGS (8)
  1. COUMADIN [Suspect]
     Dosage: COUMADIN STARTED 1999/2000,DOSE- 5MG, 6MG, 8MG DAILY WITH MOST DAYS ON 6MG
     Dates: start: 19990101
  2. ZOMIG [Suspect]
  3. KEPPRA [Concomitant]
  4. CALCIUM [Concomitant]
  5. MAGNESIUM SULFATE [Concomitant]
  6. VITAMIN A [Concomitant]
  7. VITAMIN D [Concomitant]
  8. VITAMIN K1 [Concomitant]

REACTIONS (1)
  - MIGRAINE [None]
